FAERS Safety Report 6303677-9 (Version None)
Quarter: 2009Q3

REPORT INFORMATION
  Report Type: 
  Country: None (occurrence: None)
  Receive Date: 20090807
  Receipt Date: 20090807
  Transmission Date: 20100115
  Serious: No
  Sender: FDA-Public Use
  Company Number: None

PATIENT
  Sex: Female

DRUGS (3)
  1. LAMOTRIGINE [Suspect]
     Dosage: 200MG BID PO
     Route: 048
     Dates: start: 20090501
  2. CARBAMAZEPINE [Suspect]
     Dosage: 400MG BID PO
     Route: 048
  3. CARBAMAZEPINE [Concomitant]
     Dosage: 200MG BID PO
     Route: 048

REACTIONS (2)
  - CONVULSION [None]
  - PRODUCT SUBSTITUTION ISSUE [None]
